FAERS Safety Report 8487012-6 (Version None)
Quarter: 2012Q3

REPORT INFORMATION
  Report Type: 
  Country: None (occurrence: None)
  Receive Date: 20120704
  Receipt Date: 20120629
  Transmission Date: 20120928
  Serious: Yes (Death, Hospitalization)
  Sender: FDA-Public Use
  Company Number: PHHO2012US009808

PATIENT
  Sex: Male
  Weight: 71.67 kg

DRUGS (17)
  1. PACLITAXEL [Suspect]
     Indication: SQUAMOUS CELL CARCINOMA
     Dosage: 327.3 MG, Q21D
     Route: 042
     Dates: start: 20101130
  2. PLACEBO [Suspect]
     Indication: SQUAMOUS CELL CARCINOMA
     Dosage: UNK
  3. NICOTINE [Concomitant]
  4. XALATAN [Concomitant]
  5. SYMBICORT [Concomitant]
  6. TIOTROPIUM BROMIDE [Concomitant]
  7. ENZYMES [Concomitant]
  8. CISPLATIN [Suspect]
     Indication: SQUAMOUS CELL CARCINOMA
     Dosage: 140.25 MG, Q21D
     Route: 042
     Dates: start: 20101130
  9. AFINITOR [Suspect]
     Indication: SQUAMOUS CELL CARCINOMA
     Dosage: UNK
  10. BLINDED NO TREATMENT RECEIVED [Suspect]
     Indication: SQUAMOUS CELL CARCINOMA
     Dosage: UNK
  11. ALBUTEROL [Concomitant]
  12. PROVENTIL [Concomitant]
  13. RAD001 [Suspect]
     Indication: SQUAMOUS CELL CARCINOMA
     Dosage: 5 MG, QD
     Route: 048
     Dates: start: 20101207
  14. COMPARATOR CETUXIMAB [Suspect]
     Indication: SQUAMOUS CELL CARCINOMA
     Dosage: 467.5 MG, UNK
     Route: 042
     Dates: start: 20101207
  15. ENOXAPARIN [Concomitant]
  16. DEXAMETHASONE SODIUM PHOSPHATE [Concomitant]
  17. TRUSOPT [Concomitant]

REACTIONS (4)
  - ATRIAL FIBRILLATION [None]
  - DEHYDRATION [None]
  - PNEUMONIA [None]
  - CARDIO-RESPIRATORY ARREST [None]
